FAERS Safety Report 21483503 (Version 1)
Quarter: 2022Q4

REPORT INFORMATION
  Report Type: Spontaneous
  Country: US (occurrence: US)
  Receive Date: 20221020
  Receipt Date: 20221020
  Transmission Date: 20230112
  Serious: No
  Sender: FDA-Public Use
  Company Number: US-CELLTRION INC.-2022US003511

PATIENT

DRUGS (3)
  1. INFLECTRA [Suspect]
     Active Substance: INFLIXIMAB-DYYB
     Indication: Colitis ulcerative
     Dosage: 300 MG (PERIPHERAL IV)
     Dates: start: 202106
  2. INFLECTRA [Suspect]
     Active Substance: INFLIXIMAB-DYYB
     Dosage: 200 MG
     Dates: start: 20220318
  3. INFLECTRA [Suspect]
     Active Substance: INFLIXIMAB-DYYB
     Dosage: 300 MG
     Dates: start: 20220318

REACTIONS (7)
  - Respiration abnormal [Unknown]
  - Throat tightness [Unknown]
  - Dyspnoea [Unknown]
  - Nausea [Unknown]
  - Palpitations [Unknown]
  - Flushing [Unknown]
  - Underdose [Unknown]

NARRATIVE: CASE EVENT DATE: 20220318
